FAERS Safety Report 8212282-9 (Version None)
Quarter: 2012Q1

REPORT INFORMATION
  Report Type: 
  Country: None (occurrence: None)
  Receive Date: 20120315
  Receipt Date: 20120307
  Transmission Date: 20120608
  Serious: Yes (Other)
  Sender: FDA-Public Use
  Company Number: CA-ROCHE-GNE282824

PATIENT
  Sex: Female
  Weight: 64.569 kg

DRUGS (3)
  1. XOLAIR [Suspect]
     Indication: ASTHMA
     Dosage: 300 MG, 1/MONTH
     Route: 058
     Dates: start: 20080910
  2. XOLAIR [Suspect]
     Dosage: 300 MG, 1/MONTH
     Route: 058
     Dates: start: 20100106
  3. XOLAIR [Suspect]
     Dosage: 300 MG, 1/MONTH
     Route: 058
     Dates: start: 20091113

REACTIONS (11)
  - SINUS CONGESTION [None]
  - HYPERSENSITIVITY [None]
  - CONJUNCTIVITIS [None]
  - DIZZINESS [None]
  - NASAL CONGESTION [None]
  - OBSTRUCTIVE AIRWAYS DISORDER [None]
  - ASTHMA [None]
  - BLOOD PRESSURE DECREASED [None]
  - ADENOVIRUS INFECTION [None]
  - SINUSITIS [None]
  - WHEEZING [None]
